FAERS Safety Report 13025371 (Version 2)
Quarter: 2020Q3

REPORT INFORMATION
  Report Type: Spontaneous
  Country: FR (occurrence: FR)
  Receive Date: 20161214
  Receipt Date: 20200914
  Transmission Date: 20201102
  Serious: Yes (Hospitalization)
  Sender: FDA-Public Use
  Company Number: FR-BAUSCH-BL-2016-031059

PATIENT
  Age: 54 Year
  Sex: Male
  Weight: 75 kg

DRUGS (2)
  1. TARGRETIN [Suspect]
     Active Substance: BEXAROTENE
     Dosage: DOSE REDUCED
     Route: 048
     Dates: start: 20160617, end: 20160618
  2. TARGRETIN [Suspect]
     Active Substance: BEXAROTENE
     Indication: CUTANEOUS T-CELL LYMPHOMA
     Dosage: 75 MG,12 HR
     Route: 048
     Dates: start: 20160613, end: 20160616

REACTIONS (5)
  - Toxic skin eruption [Recovering/Resolving]
  - Pruritus [Recovering/Resolving]
  - Erythema [Recovering/Resolving]
  - Transaminases increased [Recovering/Resolving]
  - Eosinophilia [Recovering/Resolving]

NARRATIVE: CASE EVENT DATE: 20160615
